FAERS Safety Report 20505734 (Version 1)
Quarter: 2022Q1

REPORT INFORMATION
  Report Type: Spontaneous
  Country: US (occurrence: None)
  Receive Date: 20220223
  Receipt Date: 20220223
  Transmission Date: 20220423
  Serious: No
  Sender: FDA-Public Use
  Company Number: US-Hikma Pharmaceuticals USA Inc.-US-H14001-21-01301

PATIENT
  Sex: Female

DRUGS (1)
  1. FLUTICASONE [Suspect]
     Active Substance: FLUTICASONE
     Indication: Nasal discomfort
     Dosage: ONE SPRAY/EACH NOSTRIL
     Route: 045

REACTIONS (2)
  - Ocular hyperaemia [Not Recovered/Not Resolved]
  - Product administration error [Recovered/Resolved]
